FAERS Safety Report 23243945 (Version 3)
Quarter: 2023Q4

REPORT INFORMATION
  Report Type: Report from Study
  Country: US (occurrence: US)
  Receive Date: 20231130
  Receipt Date: 20231221
  Transmission Date: 20240109
  Serious: Yes (Hospitalization)
  Sender: FDA-Public Use
  Company Number: US-002147023-NVSC2023US254696

PATIENT
  Sex: Female

DRUGS (1)
  1. KISQALI [Suspect]
     Active Substance: RIBOCICLIB
     Indication: Product used for unknown indication
     Dosage: 3 WEEKS, 1 WEEK OFF
     Route: 065

REACTIONS (5)
  - White blood cell count decreased [Unknown]
  - White blood cell count abnormal [Unknown]
  - Headache [Unknown]
  - Constipation [Unknown]
  - Off label use [Unknown]
